FAERS Safety Report 5202279-5 (Version None)
Quarter: 2007Q1

REPORT INFORMATION
  Report Type: 
  Country: None (occurrence: None)
  Receive Date: 20070109
  Receipt Date: 20070108
  Transmission Date: 20070707
  Serious: Yes (Hospitalization)
  Sender: FDA-Public Use
  Company Number: FR-GLAXOSMITHKLINE-B0453229A

PATIENT
  Age: 26 Year
  Sex: Male
  Weight: 114 kg

DRUGS (1)
  1. CLAMOXYL [Suspect]
     Indication: ACUTE TONSILLITIS
     Route: 048
     Dates: start: 20060529, end: 20060604

REACTIONS (3)
  - ABDOMINAL PAIN LOWER [None]
  - COLITIS [None]
  - DIARRHOEA [None]
